FAERS Safety Report 5910691-1 (Version None)
Quarter: 2008Q4

REPORT INFORMATION
  Report Type: 
  Country: None (occurrence: None)
  Receive Date: 20081007
  Receipt Date: 20081001
  Transmission Date: 20090506
  Serious: Yes (Other)
  Sender: FDA-Public Use
  Company Number: US-MERCK-0809USA04338

PATIENT
  Age: 70 Year
  Sex: Male

DRUGS (1)
  1. SINGULAIR [Suspect]
     Indication: RHINITIS ALLERGIC
     Route: 048

REACTIONS (2)
  - FEELING ABNORMAL [None]
  - HOMICIDAL IDEATION [None]
